FAERS Safety Report 8990566 (Version 1)
Quarter: 2012Q4

REPORT INFORMATION
  Report Type: Report from Study
  Country: JP (occurrence: JP)
  Receive Date: 20121228
  Receipt Date: 20121228
  Transmission Date: 20130627
  Serious: Yes (Hospitalization)
  Sender: FDA-Public Use
  Company Number: JP-BAXTER-2012BAX027946

PATIENT
  Age: 60 Year
  Sex: Female
  Weight: 58 kg

DRUGS (4)
  1. ENDOXAN 1000 MG, POUDRE POUR SOLUTION INJECTABLE [Suspect]
     Indication: BREAST CANCER
     Route: 042
     Dates: start: 20090109
  2. BEVACIZUMAB [Suspect]
     Indication: BREAST CANCER
     Route: 042
     Dates: start: 20090109, end: 20090422
  3. EPIRUBICIN [Suspect]
     Indication: BREAST CANCER
     Route: 042
     Dates: start: 20090109
  4. DOCETAXEL [Suspect]
     Indication: BREAST CANCER
     Route: 042
     Dates: start: 20090422, end: 20090422

REACTIONS (3)
  - Gastric ulcer haemorrhage [Recovered/Resolved]
  - Neutropenic infection [Recovered/Resolved]
  - Enterocolitis infectious [Recovered/Resolved]
